FAERS Safety Report 4724690-9 (Version None)
Quarter: 2005Q3

REPORT INFORMATION
  Report Type: 
  Country: None (occurrence: None)
  Receive Date: 20050720
  Receipt Date: 20050720
  Transmission Date: 20060218
  Serious: Yes (Other)
  Sender: FDA-Public Use
  Company Number: None

PATIENT
  Sex: Female
  Weight: 58.9676 kg

DRUGS (3)
  1. CELEBREX [Suspect]
     Indication: FOOT FRACTURE
     Dosage: 200MG   EVERY 12 HOURS    ORAL
     Route: 048
     Dates: start: 20050601, end: 20050718
  2. CELEBREX [Suspect]
     Indication: PAIN
     Dosage: 200MG   EVERY 12 HOURS    ORAL
     Route: 048
     Dates: start: 20050601, end: 20050718
  3. CELEBREX [Suspect]
     Indication: SWELLING
     Dosage: 200MG   EVERY 12 HOURS    ORAL
     Route: 048
     Dates: start: 20050601, end: 20050718

REACTIONS (4)
  - PAIN [None]
  - RASH ERYTHEMATOUS [None]
  - RASH GENERALISED [None]
  - RASH PRURITIC [None]
